FAERS Safety Report 6876682-1 (Version None)
Quarter: 2010Q2

REPORT INFORMATION
  Report Type: 
  Country: None (occurrence: None)
  Receive Date: 20100610
  Receipt Date: 20100426
  Transmission Date: 20101027
  Serious: No
  Sender: FDA-Public Use
  Company Number: 2010SP024602

PATIENT
  Age: 50 Year
  Sex: Male

DRUGS (3)
  1. SAPHRIS [Suspect]
     Indication: DRUG USE FOR UNKNOWN INDICATION
  2. AMBIEN [Concomitant]
  3. KLONOPIN [Concomitant]

REACTIONS (1)
  - DRUG SCREEN POSITIVE [None]
